FAERS Safety Report 4334347-4 (Version None)
Quarter: 2004Q2

REPORT INFORMATION
  Report Type: 
  Country: None (occurrence: None)
  Receive Date: 20040405
  Receipt Date: 20040322
  Transmission Date: 20050107
  Serious: Yes (Hospitalization)
  Sender: FDA-Public Use
  Company Number: THQ2004A00330

PATIENT

DRUGS (1)
  1. ACTOS [Suspect]

REACTIONS (1)
  - MYOCARDIAL INFARCTION [None]
